FAERS Safety Report 8831662 (Version 1)
Quarter: 2012Q4

REPORT INFORMATION
  Report Type: 
  Country: DE (occurrence: DE)
  Receive Date: 20121009
  Receipt Date: 20121009
  Transmission Date: 20130627
  Serious: Yes (Other)
  Sender: FDA-Public Use
  Company Number: DE-GLAXOSMITHKLINE-D0077225A

PATIENT
  Age: 60 Year
  Sex: Male
  Weight: 80 kg

DRUGS (1)
  1. VIANI [Suspect]
     Dosage: 1PUFF Twice per day
     Route: 055
     Dates: start: 20120528, end: 20120528

REACTIONS (5)
  - Angioedema [Recovered/Resolved]
  - Lip swelling [Recovered/Resolved]
  - Circumoral oedema [Recovered/Resolved]
  - Swelling face [Recovered/Resolved]
  - Expired drug administered [Recovered/Resolved]
